FAERS Safety Report 20820359 (Version 3)
Quarter: 2022Q3

REPORT INFORMATION
  Report Type: Report from Study
  Country: US (occurrence: US)
  Receive Date: 20220512
  Receipt Date: 20220702
  Transmission Date: 20221026
  Serious: Yes (Hospitalization, Other)
  Sender: FDA-Public Use
  Company Number: US-NOVARTISPH-NVSC2022US107970

PATIENT
  Age: 67 Year
  Sex: Male

DRUGS (1)
  1. ENTRESTO [Suspect]
     Active Substance: SACUBITRIL\VALSARTAN
     Indication: Product used for unknown indication
     Dosage: 1 DOSAGE FORM, BID
     Route: 065
     Dates: start: 202004

REACTIONS (7)
  - Atrial fibrillation [Recovering/Resolving]
  - Pleural effusion [Recovering/Resolving]
  - Heart rate increased [Recovering/Resolving]
  - Oropharyngeal pain [Recovering/Resolving]
  - Glycosylated haemoglobin decreased [Recovering/Resolving]
  - Dry throat [Unknown]
  - Cough [Recovering/Resolving]

NARRATIVE: CASE EVENT DATE: 20210501
